FAERS Safety Report 7480196-8 (Version None)
Quarter: 2011Q2

REPORT INFORMATION
  Report Type: 
  Country: None (occurrence: None)
  Receive Date: 20110516
  Receipt Date: 20110506
  Transmission Date: 20111010
  Serious: No
  Sender: FDA-Public Use
  Company Number: US-BIOGENIDEC-2011BI017404

PATIENT
  Age: 39 Year
  Sex: Male

DRUGS (1)
  1. TYSABRI [Suspect]
     Indication: MULTIPLE SCLEROSIS
     Route: 042
     Dates: start: 20091109

REACTIONS (6)
  - GAIT DISTURBANCE [None]
  - FEELING ABNORMAL [None]
  - LACERATION [None]
  - MULTIPLE SCLEROSIS [None]
  - MUSCLE STRAIN [None]
  - SECONDARY PROGRESSIVE MULTIPLE SCLEROSIS [None]
